FAERS Safety Report 7799654-1 (Version None)
Quarter: 2011Q4

REPORT INFORMATION
  Report Type: 
  Country: None (occurrence: None)
  Receive Date: 20111006
  Receipt Date: 20111003
  Transmission Date: 20120403
  Serious: Yes (Hospitalization, Other)
  Sender: FDA-Public Use
  Company Number: PHHO2010JP02807

PATIENT
  Sex: Female
  Weight: 54 kg

DRUGS (18)
  1. TRASTUZUMAB [Concomitant]
     Indication: BREAST CANCER METASTATIC
     Dosage: 215 MG, UNK
  2. PACLITAXEL [Concomitant]
     Dosage: UNK
     Dates: start: 20100329
  3. CEFAZOLIN SODIUM [Concomitant]
  4. PREDNISOLONE [Concomitant]
  5. AMITRIPTYLINE HYDROCHLORIDE [Concomitant]
  6. AFINITOR [Suspect]
     Indication: BREAST CANCER METASTATIC
     Dosage: CODE NOT BROKEN
     Route: 048
     Dates: start: 20091222, end: 20100207
  7. LAXOBERON [Concomitant]
     Indication: CONSTIPATION
  8. VANCOMYCIN [Concomitant]
  9. BLINDED PLACEBO [Suspect]
     Indication: BREAST CANCER METASTATIC
     Dosage: CODE NOT BROKEN
     Route: 048
     Dates: start: 20091222, end: 20100207
  10. PACLITAXEL [Concomitant]
     Indication: BREAST CANCER METASTATIC
     Dosage: 112 MG, UNK
     Dates: end: 20100315
  11. FLAVOXATE HYDROCHLORIDE [Concomitant]
     Indication: POLLAKIURIA
  12. IMIDAPRIL HYDROCHLORIDE [Concomitant]
     Indication: HYPERTENSION
  13. LOXOPROFEN SODIUM [Concomitant]
     Indication: PAIN
  14. AZUNOL [Concomitant]
     Indication: DECUBITUS ULCER
  15. BLINDED NO TREATMENT RECEIVED [Suspect]
     Indication: BREAST CANCER METASTATIC
     Dosage: CODE NOT BROKEN
     Route: 048
     Dates: start: 20091222, end: 20100207
  16. SULFAMETHOXAZOLE AND TRIMETHOPRIM [Suspect]
  17. FUROSEMIDE [Suspect]
  18. HIRUDOID [Concomitant]
     Indication: DERMATOSIS

REACTIONS (15)
  - C-REACTIVE PROTEIN INCREASED [None]
  - PLEURAL EFFUSION [None]
  - CEREBRAL ISCHAEMIA [None]
  - RENAL IMPAIRMENT [None]
  - LIVER DISORDER [None]
  - PNEUMOCYSTIS JIROVECI PNEUMONIA [None]
  - CATHETER SITE INFECTION [None]
  - EPISTAXIS [None]
  - HYPERGLYCAEMIA [None]
  - BLOOD POTASSIUM DECREASED [None]
  - CEREBRAL ATROPHY [None]
  - ASCITES [None]
  - ANAEMIA [None]
  - MEMORY IMPAIRMENT [None]
  - OEDEMA [None]
